FAERS Safety Report 11002508 (Version 1)
Quarter: 2015Q2

REPORT INFORMATION
  Report Type: Spontaneous
  Country: JP (occurrence: JP)
  Receive Date: 20150408
  Receipt Date: 20150408
  Transmission Date: 20150821
  Serious: Yes (Life-Threatening, Other)
  Sender: FDA-Public Use
  Company Number: JP-GLAXOSMITHKLINE-JP2015JPN045213

PATIENT
  Age: 66 Year
  Sex: Male

DRUGS (6)
  1. WARFARIN [Suspect]
     Active Substance: WARFARIN
     Dosage: 3.5 MG, 1D
     Route: 048
     Dates: start: 20120323, end: 20140203
  2. VOTRIENT [Suspect]
     Active Substance: PAZOPANIB HYDROCHLORIDE
     Indication: RHABDOMYOSARCOMA
     Dosage: 600 MG, 1D
     Route: 048
     Dates: start: 20140127, end: 20140626
  3. WARFARIN [Suspect]
     Active Substance: WARFARIN
     Dosage: 2 MG, 1D
     Route: 048
     Dates: start: 20140207, end: 20140217
  4. WARFARIN [Suspect]
     Active Substance: WARFARIN
     Dosage: 1.5 MG, 1D
     Route: 048
     Dates: start: 20140218, end: 20140306
  5. WARFARIN [Suspect]
     Active Substance: WARFARIN
     Dosage: 3 MG, 1D
     Route: 048
     Dates: start: 20140204, end: 20140206
  6. PARIET [Concomitant]
     Active Substance: RABEPRAZOLE SODIUM
     Dosage: 10 MG, 1D
     Dates: start: 20121220, end: 20140618

REACTIONS (3)
  - International normalised ratio increased [Recovered/Resolved]
  - Rhabdomyosarcoma [Unknown]
  - Rectal haemorrhage [Unknown]

NARRATIVE: CASE EVENT DATE: 20140131
